FAERS Safety Report 12433711 (Version 1)
Quarter: 2016Q2

REPORT INFORMATION
  Report Type: Report from Study
  Country: US (occurrence: US)
  Receive Date: 20160603
  Receipt Date: 20160603
  Transmission Date: 20160815
  Serious: No
  Sender: FDA-Public Use
  Company Number: US-MDT-ADR-2016-00999

PATIENT
  Age: 57 Year
  Sex: Female

DRUGS (4)
  1. COMPOUNDED BACLOFEN [Suspect]
     Active Substance: BACLOFEN
     Dosage: 836.2MCG/DAY
     Route: 037
     Dates: start: 20121003
  2. MORPHINE [Suspect]
     Active Substance: MORPHINE
     Dosage: 4.954MG/DAY
     Route: 037
     Dates: start: 20121003
  3. MORPHINE [Suspect]
     Active Substance: MORPHINE
     Dosage: 4.714 MG/DAY
     Route: 037
     Dates: end: 20121003
  4. COMPOUNDED BACLOFEN [Suspect]
     Active Substance: BACLOFEN
     Dosage: 795.8 MCG/DAY
     Route: 037
     Dates: end: 20121003

REACTIONS (4)
  - Memory impairment [Not Recovered/Not Resolved]
  - Somnolence [Recovered/Resolved]
  - Sleep apnoea syndrome [Recovered/Resolved]
  - Fall [Recovered/Resolved]
